FAERS Safety Report 4967224-6 (Version None)
Quarter: 2006Q2

REPORT INFORMATION
  Report Type: 
  Country: None (occurrence: None)
  Receive Date: 20060410
  Receipt Date: 20060329
  Transmission Date: 20061013
  Serious: Yes (Hospitalization)
  Sender: FDA-Public Use
  Company Number: 2006GB00544

PATIENT
  Age: 38 Year
  Sex: Male

DRUGS (8)
  1. QUETIAPINE [Suspect]
     Indication: SCHIZOPHRENIA
     Route: 048
     Dates: start: 20051015, end: 20060308
  2. QUETIAPINE [Suspect]
     Indication: EXTRAPYRAMIDAL DISORDER
     Route: 048
     Dates: start: 20051015, end: 20060308
  3. QUETIAPINE [Suspect]
     Route: 048
     Dates: start: 20060308
  4. QUETIAPINE [Suspect]
     Route: 048
     Dates: start: 20060308
  5. MIRTAZAPINE [Concomitant]
     Indication: DEPRESSION
  6. MIRTAZAPINE [Concomitant]
     Dates: start: 20051124
  7. SIMVASTATIN [Concomitant]
     Indication: HYPERCHOLESTEROLAEMIA
     Route: 048
     Dates: start: 20051015
  8. LORAZEPAM [Concomitant]
     Indication: AGITATION
     Dates: start: 20060221

REACTIONS (2)
  - MENTAL DISORDER [None]
  - PERSECUTORY DELUSION [None]
